FAERS Safety Report 9224423 (Version 1)
Quarter: 2013Q1

REPORT INFORMATION
  Report Type: Spontaneous
  Country: US (occurrence: None)
  Receive Date: 20120917
  Receipt Date: 20120917
  Transmission Date: 20140127
  Serious: Yes (Hospitalization)
  Sender: FDA-Public Use
  Company Number: 2012SP015315

PATIENT
  Age: 41 Year
  Sex: Female
  Weight: 133.54 kg

DRUGS (7)
  1. IMPLANON [Suspect]
     Indication: CONTRACEPTION
     Dates: start: 201103
  2. PROMETHAZINE [Concomitant]
  3. TORADOL [Concomitant]
  4. VICODIN [Concomitant]
  5. ALBUTEROL [Concomitant]
  6. TRAZODONE [Concomitant]
  7. AMPHETAMINE [Concomitant]

REACTIONS (1)
  - Deep vein thrombosis [None]
